FAERS Safety Report 14368340 (Version 3)
Quarter: 2018Q2

REPORT INFORMATION
  Report Type: Spontaneous
  Country: US (occurrence: US)
  Receive Date: 20180109
  Receipt Date: 20180530
  Transmission Date: 20180711
  Serious: Yes (Hospitalization, Other)
  Sender: FDA-Public Use
  Company Number: US-PFIZER INC-2018009515

PATIENT
  Age: 61 Year
  Sex: Female

DRUGS (1)
  1. PREMPRO [Suspect]
     Active Substance: ESTROGENS, CONJUGATED\MEDROXYPROGESTERONE ACETATE
     Indication: HOT FLUSH
     Dosage: UNK, DAILY  (REPORTED ^045^-1.5 PER DAY, 20 YEARS)

REACTIONS (7)
  - Spinal osteoarthritis [Not Recovered/Not Resolved]
  - Bone disorder [Unknown]
  - Cough [Unknown]
  - Post procedural infection [Not Recovered/Not Resolved]
  - Neck pain [Not Recovered/Not Resolved]
  - Choking [Unknown]
  - Intervertebral disc protrusion [Unknown]

NARRATIVE: CASE EVENT DATE: 2012
